FAERS Safety Report 4301545-5 (Version None)
Quarter: 2004Q1

REPORT INFORMATION
  Report Type: 
  Country: None (occurrence: None)
  Receive Date: 20040219
  Receipt Date: 20040209
  Transmission Date: 20041129
  Serious: Yes (Hospitalization)
  Sender: FDA-Public Use
  Company Number: US-JNJFOC-20040202245

PATIENT
  Age: 44 Year
  Sex: Female
  Weight: 72.5755 kg

DRUGS (7)
  1. TOPAMAX [Suspect]
     Indication: BACK PAIN
     Dosage: SEE IMAGE
  2. TOPAMAX [Suspect]
     Indication: BACK PAIN
     Dosage: SEE IMAGE
  3. TOPAMAX [Suspect]
     Indication: BACK PAIN
     Dosage: SEE IMAGE
     Dates: start: 20031101
  4. ALTACE [Concomitant]
  5. CARDIZEM [Concomitant]
  6. VIOXX [Concomitant]
  7. EFFEXOR [Concomitant]

REACTIONS (4)
  - DISTURBANCE IN ATTENTION [None]
  - INSOMNIA [None]
  - NIGHT SWEATS [None]
  - TREMOR [None]
